FAERS Safety Report 16872704 (Version 1)
Quarter: 2019Q4

REPORT INFORMATION
  Report Type: Spontaneous
  Country: US (occurrence: US)
  Receive Date: 20190807
  Receipt Date: 20190807
  Transmission Date: 20200122
  Serious: No
  Sender: FDA-Public Use
  Company Number: None

PATIENT

DRUGS (2)
  1. ZEMURON [Suspect]
     Active Substance: ROCURONIUM BROMIDE
  2. ZEMPLAR [Suspect]
     Active Substance: PARICALCITOL

REACTIONS (2)
  - Transcription medication error [None]
  - Intercepted product selection error [None]
